FAERS Safety Report 19623552 (Version 2)
Quarter: 2021Q3

REPORT INFORMATION
  Report Type: Report from Study
  Country: US (occurrence: US)
  Receive Date: 20210728
  Receipt Date: 20210901
  Transmission Date: 20211014
  Serious: Yes (Hospitalization, Other)
  Sender: FDA-Public Use
  Company Number: US-TAKEDA-US201904372

PATIENT
  Age: 40 Year
  Sex: Male
  Weight: 77 kg

DRUGS (16)
  1. TEDUGLUTIDE [Suspect]
     Active Substance: TEDUGLUTIDE
     Indication: SHORT-BOWEL SYNDROME
     Dosage: 3.85 MILLIGRAM, 1/WEEK
     Route: 065
     Dates: start: 201602, end: 201608
  2. TEDUGLUTIDE [Suspect]
     Active Substance: TEDUGLUTIDE
     Dosage: 3.85 MILLIGRAM, QD
     Route: 065
     Dates: start: 201602, end: 201608
  3. TEDUGLUTIDE [Suspect]
     Active Substance: TEDUGLUTIDE
     Dosage: 3.85 MILLIGRAM, QD
     Route: 065
     Dates: start: 201602, end: 201608
  4. REQUIP [Concomitant]
     Active Substance: ROPINIROLE HYDROCHLORIDE
     Indication: IRON DEFICIENCY ANAEMIA
     Dosage: 1 MILLIGRAM, TID
     Route: 048
     Dates: start: 20170720, end: 20180222
  5. XANAX [Concomitant]
     Active Substance: ALPRAZOLAM
     Indication: CROHN^S DISEASE
  6. REQUIP [Concomitant]
     Active Substance: ROPINIROLE HYDROCHLORIDE
     Dosage: 2 MILLIGRAM, QD
     Route: 048
     Dates: start: 20170504, end: 20180222
  7. KAY CIEL [Concomitant]
     Active Substance: POTASSIUM CHLORIDE
     Indication: ELECTROLYTE IMBALANCE
     Dosage: 10 MILLILITER, PRN
     Route: 048
     Dates: start: 20170504, end: 20180222
  8. TEDUGLUTIDE [Suspect]
     Active Substance: TEDUGLUTIDE
     Dosage: 3.85 MILLIGRAM, QD
     Route: 065
     Dates: start: 201602, end: 201608
  9. TEDUGLUTIDE [Suspect]
     Active Substance: TEDUGLUTIDE
     Dosage: 3.85 MILLIGRAM, QD
     Route: 065
     Dates: start: 201602, end: 201608
  10. TEDUGLUTIDE [Suspect]
     Active Substance: TEDUGLUTIDE
     Indication: SHORT-BOWEL SYNDROME
     Dosage: 3.85 MILLIGRAM, 1/WEEK
     Route: 065
     Dates: start: 201602, end: 201608
  11. TEDUGLUTIDE [Suspect]
     Active Substance: TEDUGLUTIDE
     Indication: SHORT-BOWEL SYNDROME
     Dosage: 3.85 MILLIGRAM, 1/WEEK
     Route: 065
     Dates: start: 201602, end: 201608
  12. TEDUGLUTIDE [Suspect]
     Active Substance: TEDUGLUTIDE
     Indication: SHORT-BOWEL SYNDROME
     Dosage: 3.85 MILLIGRAM, 1/WEEK
     Route: 065
     Dates: start: 201602, end: 201608
  13. DELTASONE [Concomitant]
     Active Substance: PREDNISONE
     Indication: BRONCHITIS CHRONIC
     Dosage: 5 MILLIGRAM, BID
     Route: 048
     Dates: start: 20170926, end: 20180222
  14. SINGULAIR [Concomitant]
     Active Substance: MONTELUKAST SODIUM
     Indication: BRONCHITIS CHRONIC
  15. SOLU?MEDROL [Concomitant]
     Active Substance: METHYLPREDNISOLONE SODIUM SUCCINATE
     Indication: BRONCHITIS CHRONIC
  16. DIFLUCAN [Concomitant]
     Active Substance: FLUCONAZOLE
     Indication: SHORT-BOWEL SYNDROME

REACTIONS (4)
  - Intestinal fistula [Recovered/Resolved]
  - Condition aggravated [Recovered/Resolved]
  - Crohn^s disease [Recovered/Resolved]
  - Short-bowel syndrome [Recovered/Resolved]

NARRATIVE: CASE EVENT DATE: 20180129
